FAERS Safety Report 19947592 (Version 1)
Quarter: 2021Q4

REPORT INFORMATION
  Report Type: Spontaneous
  Country: ES (occurrence: ES)
  Receive Date: 20211012
  Receipt Date: 20211012
  Transmission Date: 20220304
  Serious: Yes (Death, Other)
  Sender: FDA-Public Use
  Company Number: ES-CELLTRION HEALTHCARE HUNGARY KFT-2021ES008264

PATIENT

DRUGS (3)
  1. MYCOPHENOLATE MOFETIL [Suspect]
     Active Substance: MYCOPHENOLATE MOFETIL
     Indication: Immune tolerance induction
     Dosage: UNK, 5-10 MG/KG/BID X 2 WEEKS
  2. RITUXIMAB [Suspect]
     Active Substance: RITUXIMAB
     Indication: Immune tolerance induction
     Dosage: 375 MG/M2 (MEDIAN DOSES 3.5 DOSES, RANGE 1-6, ADMINISTERED WEEKLY STARTING FROM DAY -35) X 4 DOSES
  3. UNSPECIFIED INGREDIENT [Suspect]
     Active Substance: UNSPECIFIED INGREDIENT
     Indication: Immune tolerance induction
     Dosage: UNK (TPE X2 SESSIONS)

REACTIONS (3)
  - Disease recurrence [Fatal]
  - Off label use [Unknown]
  - Drug effective for unapproved indication [Unknown]
